FAERS Safety Report 25395385 (Version 1)
Quarter: 2025Q2

REPORT INFORMATION
  Report Type: Spontaneous
  Country: US (occurrence: US)
  Receive Date: 20250604
  Receipt Date: 20250604
  Transmission Date: 20250717
  Serious: Yes (Life-Threatening, Hospitalization, Other)
  Sender: Steriscience PTE
  Company Number: US-STERISCIENCE B.V.-2025-ST-001022

PATIENT
  Age: 33 Year
  Sex: Female

DRUGS (1)
  1. NAFCILLIN [Suspect]
     Active Substance: NAFCILLIN SODIUM
     Indication: Endocarditis staphylococcal
     Dosage: 2 MILLIGRAM, Q4H
     Route: 065

REACTIONS (2)
  - Respiratory distress [Unknown]
  - Drug ineffective [Unknown]
